FAERS Safety Report 6567066-4 (Version None)
Quarter: 2010Q1

REPORT INFORMATION
  Report Type: 
  Country: None (occurrence: None)
  Receive Date: 20100202
  Receipt Date: 20100121
  Transmission Date: 20100710
  Serious: Yes (Other)
  Sender: FDA-Public Use
  Company Number: TW-PFIZER INC-2009290697

PATIENT
  Age: 38 Year
  Sex: Female

DRUGS (5)
  1. TAMOXIFEN CITRATE [Suspect]
     Indication: BREAST CANCER
     Dosage: UNK
  2. EPIRUBICIN HYDROCHLORIDE [Suspect]
     Indication: BREAST CANCER
     Dosage: UNK
  3. ENDOXAN [Suspect]
     Indication: BREAST CANCER
     Dosage: UNK
  4. TAXOTERE [Suspect]
     Indication: BREAST CANCER
     Dosage: UNK
  5. ZOLADEX [Suspect]
     Indication: BREAST CANCER
     Dosage: UNK

REACTIONS (2)
  - OSTEOMYELITIS [None]
  - OSTEONECROSIS [None]
